FAERS Safety Report 4354651-3 (Version None)
Quarter: 2004Q2

REPORT INFORMATION
  Report Type: 
  Country: None (occurrence: None)
  Receive Date: 20040503
  Receipt Date: 20040423
  Transmission Date: 20050107
  Serious: Yes (Death)
  Sender: FDA-Public Use
  Company Number: PERC20040019

PATIENT
  Age: 62 Year
  Sex: Female

DRUGS (1)
  1. PERCOCET [Suspect]
     Indication: BACK PAIN
     Dates: end: 20010901

REACTIONS (1)
  - COMPLETED SUICIDE [None]
